FAERS Safety Report 21459464 (Version 4)
Quarter: 2022Q4

REPORT INFORMATION
  Report Type: Report from Study
  Country: CZ (occurrence: CZ)
  Receive Date: 20221014
  Receipt Date: 20221121
  Transmission Date: 20230112
  Serious: Yes (Hospitalization, Other)
  Sender: FDA-Public Use
  Company Number: CZ-BRISTOL-MYERS SQUIBB COMPANY-2022-118418

PATIENT
  Age: 66 Year
  Sex: Female
  Weight: 67 kg

DRUGS (7)
  1. OZANIMOD [Suspect]
     Active Substance: OZANIMOD
     Indication: Colitis ulcerative
     Route: 048
     Dates: start: 20190718, end: 20221004
  2. CITALOPRAM [Concomitant]
     Active Substance: CITALOPRAM HYDROBROMIDE
     Indication: Depression
     Dosage: FREQUENCY: AS NEEDED
     Route: 048
     Dates: start: 2016
  3. LANXIB [Concomitant]
     Indication: Prophylaxis
     Dosage: FREQUENCY: AS NEEDED
     Route: 048
     Dates: start: 20190424
  4. COMIRNATY [Concomitant]
     Active Substance: TOZINAMERAN
     Indication: COVID-19 prophylaxis
     Dosage: 1 APPLICATION, ONCE
     Route: 030
     Dates: start: 20210311, end: 20210311
  5. COMIRNATY [Concomitant]
     Active Substance: TOZINAMERAN
     Dosage: 1 APPLICATION, ONCE
     Route: 030
     Dates: start: 20210401, end: 20210401
  6. COMIRNATY [Concomitant]
     Active Substance: TOZINAMERAN
     Dosage: 1 APPLICATION, ONCE
     Route: 030
     Dates: start: 20211221, end: 20211221
  7. METAMIZOLE [Concomitant]
     Active Substance: METAMIZOLE
     Indication: Back pain
     Dosage: FREQUENCY: AS NEEDED
     Route: 048
     Dates: start: 20220516, end: 20220714

REACTIONS (1)
  - Follicular lymphoma stage IV [Recovering/Resolving]

NARRATIVE: CASE EVENT DATE: 20220608
